FAERS Safety Report 17777275 (Version 5)
Quarter: 2023Q1

REPORT INFORMATION
  Report Type: Report from Study
  Country: US (occurrence: US)
  Receive Date: 20200513
  Receipt Date: 20230112
  Transmission Date: 20230418
  Serious: No
  Sender: FDA-Public Use
  Company Number: US-ACADIA PHARMACEUTICALS INC.-ACA-2019-013723

PATIENT
  Age: 72 Year
  Sex: Male

DRUGS (20)
  1. NUPLAZID [Suspect]
     Active Substance: PIMAVANSERIN TARTRATE
     Indication: Parkinson^s disease
     Dosage: 34 MILLIGRAM, QD
     Route: 048
     Dates: start: 20190802
  2. GLYCOPYRROLATE [Suspect]
     Active Substance: GLYCOPYRROLATE
     Indication: Drooling
     Dosage: 1 MILLIGRAM
  3. MELATONIN [Concomitant]
     Active Substance: MELATONIN
     Indication: Product used for unknown indication
     Dosage: 10 MILLIGRAM
  4. ATORVASTATIN CALCIUM [Concomitant]
     Active Substance: ATORVASTATIN CALCIUM
     Dosage: 10 MILLIGRAM
  5. SEROQUEL [Concomitant]
     Active Substance: QUETIAPINE FUMARATE
     Dosage: 25 MILLIGRAM
  6. MUCUS RELIEF [Concomitant]
     Active Substance: GUAIFENESIN
     Dosage: 600 MILLIGRAM
  7. ASPIRIN [Concomitant]
     Active Substance: ASPIRIN
     Dosage: 81 MILLIGRAM
  8. CARBIDOPA\LEVODOPA [Concomitant]
     Active Substance: CARBIDOPA\LEVODOPA
  9. TAMSULOSIN HYDROCHLORIDE [Concomitant]
     Active Substance: TAMSULOSIN HYDROCHLORIDE
     Dosage: 0.4 MG
  10. METOPROLOL SUCCINATE [Concomitant]
     Active Substance: METOPROLOL SUCCINATE
  11. CLOPIDOGREL [Concomitant]
     Active Substance: CLOPIDOGREL BISULFATE
     Dosage: 75 MILLIGRAM
  12. LISINOPRIL [Concomitant]
     Active Substance: LISINOPRIL
     Dosage: 5 MILLIGRAM
  13. GLIMEPIRIDE [Concomitant]
     Active Substance: GLIMEPIRIDE
     Dosage: 2 MILLIGRAM
  14. VITAMIN B COMPLEX NOS [Concomitant]
     Active Substance: CYANOCOBALAMIN\PYRIDOXINE HYDROCHLORIDE\RIBOFLAVIN\SODIUM PANTOTHENATE\THIAMINE HYDROCHLORIDE\VITAMI
  15. VITAMIN D3 [Concomitant]
     Active Substance: CHOLECALCIFEROL
     Dosage: 1250 MILLIGRAM
  16. QUETIAPINE [Concomitant]
     Active Substance: QUETIAPINE
  17. DONEPEZIL [Concomitant]
     Active Substance: DONEPEZIL
  18. RIVASTIGMINE [Concomitant]
     Active Substance: RIVASTIGMINE
  19. CARBIDOPA [Concomitant]
     Active Substance: CARBIDOPA
  20. METOPROLOL [Concomitant]
     Active Substance: METOPROLOL

REACTIONS (10)
  - Pollakiuria [Unknown]
  - Drooling [Unknown]
  - Middle insomnia [Unknown]
  - Somnambulism [Unknown]
  - Nightmare [Unknown]
  - Hallucination [Not Recovered/Not Resolved]
  - Hallucination [Unknown]
  - Hallucination [Unknown]
  - Drug ineffective [Unknown]
  - Hallucination [Unknown]

NARRATIVE: CASE EVENT DATE: 20190802
